FAERS Safety Report 11338030 (Version 1)
Quarter: 2015Q3

REPORT INFORMATION
  Report Type: Spontaneous
  Country: US (occurrence: US)
  Receive Date: 20150803
  Receipt Date: 20150803
  Transmission Date: 20151125
  Serious: Yes (Hospitalization)
  Sender: FDA-Public Use
  Company Number: US-ELI_LILLY_AND_COMPANY-US201005000533

PATIENT
  Age: 42 Year
  Sex: Male
  Weight: 78.46 kg

DRUGS (5)
  1. ZYPREXA [Suspect]
     Active Substance: OLANZAPINE
     Dosage: 20 MG, EACH EVENING
     Dates: start: 20100421, end: 20100422
  2. ZYPREXA [Suspect]
     Active Substance: OLANZAPINE
     Dosage: 20 MG, EACH EVENING
     Dates: start: 20100423
  3. NEURONTIN [Concomitant]
     Active Substance: GABAPENTIN
     Indication: ANXIETY
     Dosage: 200 MG, UNK
     Dates: start: 20100104, end: 20100422
  4. ZYPREXA [Suspect]
     Active Substance: OLANZAPINE
     Indication: PSYCHOTIC DISORDER
     Dosage: 5 MG, UNK
     Dates: start: 20091206, end: 20100421
  5. LIBRIUM [Concomitant]
     Active Substance: CHLORDIAZEPOXIDE HYDROCHLORIDE
     Indication: ALCOHOL DETOXIFICATION
     Dosage: 10 MG, UNK
     Dates: start: 20100421, end: 20100422

REACTIONS (4)
  - Lethargy [Recovered/Resolved]
  - Overdose [Recovered/Resolved]
  - Off label use [Not Recovered/Not Resolved]
  - Disorientation [Recovered/Resolved]

NARRATIVE: CASE EVENT DATE: 20091206
